FAERS Safety Report 15740336 (Version 1)
Quarter: 2018Q4

REPORT INFORMATION
  Report Type: Spontaneous
  Country: US (occurrence: US)
  Receive Date: 20181213
  Receipt Date: 20181213
  Transmission Date: 20190205
  Serious: Yes (Hospitalization)
  Sender: FDA-Public Use
  Company Number: None

PATIENT
  Age: 68 Year
  Sex: Male
  Weight: 87.8 kg

DRUGS (2)
  1. CISPLATIN. [Suspect]
     Active Substance: CISPLATIN
     Dates: end: 20181126
  2. GEMCITABINE [Suspect]
     Active Substance: GEMCITABINE\GEMCITABINE HYDROCHLORIDE
     Dates: end: 20181126

REACTIONS (5)
  - Rash pruritic [None]
  - Metabolic acidosis [None]
  - Dehydration [None]
  - Inadequate analgesia [None]
  - Renal failure [None]

NARRATIVE: CASE EVENT DATE: 20181209
